FAERS Safety Report 12650248 (Version 1)
Quarter: 2016Q3

REPORT INFORMATION
  Report Type: Spontaneous
  Country: SE (occurrence: SE)
  Receive Date: 20160813
  Receipt Date: 20160813
  Transmission Date: 20161109
  Serious: Yes (Hospitalization)
  Sender: FDA-Public Use
  Company Number: SE-009507513-1608SWE006614

PATIENT
  Age: 26 Year
  Sex: Female

DRUGS (4)
  1. NASONEX [Suspect]
     Active Substance: MOMETASONE FUROATE
     Indication: SEASONAL ALLERGY
     Dosage: 2 ACTUATIONS IN EACH NOSTRIL ONCE DAILY
     Dates: start: 201506
  2. LIVOSTIN [Concomitant]
     Active Substance: LEVOCABASTINE HYDROCHLORIDE
  3. KESTINE [Concomitant]
     Active Substance: EBASTINE
  4. NASONEX [Suspect]
     Active Substance: MOMETASONE FUROATE
     Dosage: 2 ACTUATIONS IN EACH NOSTRIL ONCE DAILY
     Dates: start: 2016

REACTIONS (4)
  - Dizziness [Not Recovered/Not Resolved]
  - Nausea [Not Recovered/Not Resolved]
  - Diarrhoea [Not Recovered/Not Resolved]
  - Dysphonia [Recovered/Resolved]

NARRATIVE: CASE EVENT DATE: 201507
